FAERS Safety Report 7699162-2 (Version None)
Quarter: 2011Q3

REPORT INFORMATION
  Report Type: 
  Country: None (occurrence: None)
  Receive Date: 20110819
  Receipt Date: 20110810
  Transmission Date: 20111222
  Serious: No
  Sender: FDA-Public Use
  Company Number: PL-BAYER-2011-072163

PATIENT
  Age: 19 Year
  Sex: Female

DRUGS (3)
  1. MIRELLE [Suspect]
     Indication: CONTRACEPTION
  2. ESTRADIOL VALERATE/DIENOGEST [Suspect]
     Indication: CONTRACEPTION
  3. YAZ [Suspect]
     Indication: CONTRACEPTION
     Route: 048

REACTIONS (1)
  - METRORRHAGIA [None]
